FAERS Safety Report 5483229-3 (Version None)
Quarter: 2007Q4

REPORT INFORMATION
  Report Type: 
  Country: None (occurrence: None)
  Receive Date: 20071009
  Receipt Date: 20070920
  Transmission Date: 20080405
  Serious: Yes (Death, Hospitalization)
  Sender: FDA-Public Use
  Company Number: DSA_30675_2007

PATIENT
  Sex: Male

DRUGS (12)
  1. TEMESTA (TEMESTA - LORAZEPAM) (1 MG, 2 MG) [Suspect]
     Indication: DRUG USE FOR UNKNOWN INDICATION
     Dosage: (1 MG QD ORAL), (2 MG QD ORAL)
     Route: 048
     Dates: start: 20070101, end: 20070618
  2. TEMESTA (TEMESTA - LORAZEPAM) (1 MG, 2 MG) [Suspect]
     Indication: DRUG USE FOR UNKNOWN INDICATION
     Dosage: (1 MG QD ORAL), (2 MG QD ORAL)
     Route: 048
     Dates: start: 20070619, end: 20070620
  3. HALDOL [Suspect]
     Indication: DRUG USE FOR UNKNOWN INDICATION
     Dosage: (5 MG QD ORAL), (2 MG QD ORAL)
     Route: 048
     Dates: start: 20070615, end: 20070618
  4. HALDOL [Suspect]
     Indication: DRUG USE FOR UNKNOWN INDICATION
     Dosage: (5 MG QD ORAL), (2 MG QD ORAL)
     Route: 048
     Dates: start: 20070619, end: 20070619
  5. DIPIPERON (DIPIPERON -PIPAMPERONE) (30 MG, 40 MG) (NOT SPECIFIED) [Suspect]
     Indication: DRUG USE FOR UNKNOWN INDICATION
     Dosage: (10 MG ORAL), (40 MG QD ORAL)
     Route: 048
     Dates: start: 20070617, end: 20070618
  6. DIPIPERON (DIPIPERON -PIPAMPERONE) (30 MG, 40 MG) (NOT SPECIFIED) [Suspect]
     Indication: DRUG USE FOR UNKNOWN INDICATION
     Dosage: (10 MG ORAL), (40 MG QD ORAL)
     Route: 048
     Dates: start: 20070619, end: 20070619
  7. FLUIMUCIL [Concomitant]
  8. DEANXIT /00428501/ [Concomitant]
  9. SEROPRAM /00582602/ [Concomitant]
  10. ASPIRIN [Concomitant]
  11. EMCONCOR /00802602/ [Concomitant]
  12. PRAVASTATIN [Concomitant]

REACTIONS (9)
  - AORTIC STENOSIS [None]
  - CARDIAC ARREST [None]
  - CYANOSIS [None]
  - FEAR [None]
  - HYPERVENTILATION [None]
  - PANIC ATTACK [None]
  - RESPIRATORY DISTRESS [None]
  - SLEEP DISORDER [None]
  - UNRESPONSIVE TO STIMULI [None]
